FAERS Safety Report 5177568-3 (Version None)
Quarter: 2006Q4

REPORT INFORMATION
  Report Type: 
  Country: None (occurrence: None)
  Receive Date: 20061207
  Receipt Date: 20061129
  Transmission Date: 20070319
  Serious: Yes (Other)
  Sender: FDA-Public Use
  Company Number: 2006147429

PATIENT
  Sex: Female
  Weight: 60.3284 kg

DRUGS (10)
  1. CHANTIX [Suspect]
     Indication: SMOKING CESSATION THERAPY
     Dates: start: 20060101
  2. GEODON [Suspect]
     Indication: BIPOLAR DISORDER
  3. CLONIDINE [Suspect]
     Indication: HYPERTENSION
     Dosage: (1 D)
  4. SEROQUEL [Suspect]
     Indication: BIPOLAR DISORDER
     Dates: start: 20060101
  5. MIACALCIN [Concomitant]
  6. LEVOTHYROXINE SODIUM [Concomitant]
  7. ASPIRIN [Concomitant]
  8. VYTORIN [Concomitant]
  9. SPIRIVA [Concomitant]
  10. ANTIDEPRESSANTS (ANTIDEPRESSANTS) [Concomitant]

REACTIONS (6)
  - BIPOLAR DISORDER [None]
  - BLOOD PRESSURE DECREASED [None]
  - BLOOD PRESSURE FLUCTUATION [None]
  - HYPERTENSION [None]
  - SYNCOPE [None]
  - TREATMENT NONCOMPLIANCE [None]
